FAERS Safety Report 4811261-9 (Version None)
Quarter: 2005Q4

REPORT INFORMATION
  Report Type: 
  Country: None (occurrence: None)
  Receive Date: 20051027
  Receipt Date: 20051018
  Transmission Date: 20060501
  Serious: Yes (Death, Hospitalization)
  Sender: FDA-Public Use
  Company Number: CL-BRISTOL-MYERS SQUIBB COMPANY-13148846

PATIENT
  Age: 57 Year
  Sex: Female

DRUGS (4)
  1. CISPLATIN [Suspect]
     Indication: GASTRIC CANCER
     Route: 041
     Dates: start: 20051003, end: 20051003
  2. FLUOROURACIL [Suspect]
     Indication: GASTRIC CANCER
     Dosage: ADMINISTERED FOR 5 DAYS EVERY 28 DAYS
     Route: 041
     Dates: start: 20051003, end: 20051008
  3. ACETAMINOPHEN [Concomitant]
     Indication: HEADACHE
     Route: 048
     Dates: start: 20050801, end: 20051003
  4. ALPRAZOLAM [Concomitant]
     Indication: ANXIETY
     Route: 048
     Dates: start: 20050926, end: 20051003

REACTIONS (2)
  - DEHYDRATION [None]
  - VOMITING [None]
